FAERS Safety Report 11500181 (Version 1)
Quarter: 2015Q3

REPORT INFORMATION
  Report Type: Spontaneous
  Country: US (occurrence: None)
  Receive Date: 20150910
  Receipt Date: 20150910
  Transmission Date: 20151125
  Serious: Yes (Hospitalization)
  Sender: FDA-Public Use
  Company Number: 54973 AE#1628

PATIENT
  Sex: Female

DRUGS (14)
  1. CALC FLUOR 30X [Suspect]
     Active Substance: CALCIUM FLUORIDE
     Indication: NASOPHARYNGITIS
     Dosage: 1 TAB QID X 5-6 DAYS
  2. CALC FLUOR 30X [Suspect]
     Active Substance: CALCIUM FLUORIDE
     Indication: SKIN FISSURES
     Dosage: 1 TAB QID X 5-6 DAYS
  3. SILICEA [Suspect]
     Active Substance: SILICON DIOXIDE
     Indication: RASH
     Dosage: 1 TAB QID X 5-6 DAYS
  4. CALC SULPH 6X [Suspect]
     Active Substance: CALCIUM SULFATE
     Indication: OROPHARYNGEAL PAIN
     Dosage: 1 TAB QID X 5-6 DAYS
  5. CALC SULPH 6X [Suspect]
     Active Substance: CALCIUM SULFATE
     Indication: ACNE
     Dosage: 1 TAB QID X 5-6 DAYS
  6. SILICEA [Suspect]
     Active Substance: SILICON DIOXIDE
     Indication: ONYCHOCLASIS
     Dosage: 1 TAB QID X 5-6 DAYS
  7. SILICEA [Suspect]
     Active Substance: SILICON DIOXIDE
     Indication: TRICHORRHEXIS
     Dosage: 1 TAB QID X 5-6 DAYS
  8. FERRUM PHOSPHORICUM [Suspect]
     Active Substance: FERROSOFERRIC PHOSPHATE
     Indication: PYREXIA
     Dosage: 1 TAB QID X 5-6 DAYS
  9. KALI SULPH 30X [Suspect]
     Active Substance: POTASSIUM SULFATE
     Indication: NASOPHARYNGITIS
     Dosage: 1 TAB QID X 5-6 DAYS
  10. FERRUM PHOSPHORICUM [Suspect]
     Active Substance: FERROSOFERRIC PHOSPHATE
     Indication: NASOPHARYNGITIS
     Dosage: 1 TAB QID X 5-6 DAYS
  11. CALC FLUOR 30X [Suspect]
     Active Substance: CALCIUM FLUORIDE
     Indication: HAEMORRHOIDS
     Dosage: 1 TAB QID X 5-6 DAYS
  12. CALC SULPH 6X [Suspect]
     Active Substance: CALCIUM SULFATE
     Indication: NASOPHARYNGITIS
     Dosage: 1 TAB QID X 5-6 DAYS
  13. KALI SULPH 30X [Suspect]
     Active Substance: POTASSIUM SULFATE
     Indication: RASH
     Dosage: 1 TAB QID X 5-6 DAYS
  14. FERRUM PHOSPHORICUM [Suspect]
     Active Substance: FERROSOFERRIC PHOSPHATE
     Indication: INFLAMMATION
     Dosage: 1 TAB QID X 5-6 DAYS

REACTIONS (4)
  - Skin disorder [None]
  - Sickle cell anaemia [None]
  - Eczema [None]
  - Condition aggravated [None]

NARRATIVE: CASE EVENT DATE: 201508
